FAERS Safety Report 16349780 (Version 1)
Quarter: 2019Q2

REPORT INFORMATION
  Report Type: Spontaneous
  Country: GB (occurrence: GB)
  Receive Date: 20190523
  Receipt Date: 20190523
  Transmission Date: 20190711
  Serious: Yes (Disabling)
  Sender: FDA-Public Use
  Company Number: PHHY2019GB112799

PATIENT
  Age: 60 Year
  Sex: Female
  Weight: 60.5 kg

DRUGS (3)
  1. PRAXILENE [Concomitant]
     Active Substance: NAFRONYL
     Indication: PRODUCT USED FOR UNKNOWN INDICATION
     Dosage: UNK
     Route: 065
  2. ROSUVASTATIN. [Suspect]
     Active Substance: ROSUVASTATIN
     Indication: HYPERCHOLESTEROLAEMIA
     Dosage: 5 MG, UNK
     Route: 048
     Dates: start: 20190326, end: 20190331
  3. ATORVASTATIN CALCIUM TRIHYDRATE [Suspect]
     Active Substance: ATORVASTATIN CALCIUM
     Indication: HYPERCHOLESTEROLAEMIA
     Dosage: 40 MG, UNK
     Route: 048
     Dates: start: 20181217, end: 20181218

REACTIONS (3)
  - Muscular weakness [Not Recovered/Not Resolved]
  - Pain in extremity [Not Recovered/Not Resolved]
  - Myalgia [Not Recovered/Not Resolved]

NARRATIVE: CASE EVENT DATE: 20190326
